FAERS Safety Report 6891324-7 (Version None)
Quarter: 2010Q3

REPORT INFORMATION
  Report Type: 
  Country: None (occurrence: None)
  Receive Date: 20100731
  Receipt Date: 20090731
  Transmission Date: 20110219
  Serious: No
  Sender: FDA-Public Use
  Company Number: US-PFIZER INC-2009251068

PATIENT
  Sex: Male
  Weight: 69.4 kg

DRUGS (7)
  1. LIPITOR [Suspect]
     Indication: BLOOD CHOLESTEROL INCREASED
     Dosage: 10 MG, 1X/DAY
     Route: 048
     Dates: start: 20080101
  2. LOVAZA [Concomitant]
  3. FISH OIL [Concomitant]
  4. ACETYLSALICYLIC ACID [Concomitant]
  5. LISINOPRIL [Concomitant]
     Dosage: 5 MG, UNK
  6. IBUPROFEN [Concomitant]
  7. VITAMINS NOS [Concomitant]

REACTIONS (1)
  - MUSCLE SPASMS [None]
